FAERS Safety Report 23123555 (Version 2)
Quarter: 2024Q1

REPORT INFORMATION
  Report Type: Spontaneous
  Country: CA (occurrence: CA)
  Receive Date: 20231030
  Receipt Date: 20240220
  Transmission Date: 20240409
  Serious: Yes (Hospitalization, Other)
  Sender: FDA-Public Use
  Company Number: CA-SA-SAC20231021000578

PATIENT
  Age: 72 Year
  Sex: Female

DRUGS (1)
  1. FASTURTEC [Suspect]
     Active Substance: RASBURICASE
     Dosage: UNK UNK, 1X
     Route: 042

REACTIONS (8)
  - Chills [Unknown]
  - Discomfort [Unknown]
  - Dizziness [Unknown]
  - Wheezing [Unknown]
  - Dyspnoea [Unknown]
  - Hyperhidrosis [Unknown]
  - Hypotension [Unknown]
  - Nausea [Unknown]

NARRATIVE: CASE EVENT DATE: 20230615
